FAERS Safety Report 5531666-0 (Version None)
Quarter: 2007Q4

REPORT INFORMATION
  Report Type: 
  Country: None (occurrence: None)
  Receive Date: 20071128
  Receipt Date: 20071126
  Transmission Date: 20080405
  Serious: Yes (Death)
  Sender: FDA-Public Use
  Company Number: 144-C5013-07111382

PATIENT
  Age: 75 Year
  Sex: Male
  Weight: 60 kg

DRUGS (7)
  1. CC-5013 (LENALIDOMIDE) (CAPSULES) [Suspect]
     Indication: AMYLOIDOSIS
     Dosage: 15 MG, DAILY, FOR 21 DAYS, ORAL
     Route: 048
     Dates: start: 20070205, end: 20071024
  2. DEXAMETHASONE TAB [Concomitant]
  3. ACETYLSALICYLIC ACID SRT [Concomitant]
  4. NEURONTIN [Concomitant]
  5. FUROSEMIDE [Concomitant]
  6. ALDACTONE [Concomitant]
  7. INDAPAMIDE [Concomitant]

REACTIONS (2)
  - DISEASE PROGRESSION [None]
  - MULTI-ORGAN FAILURE [None]
